FAERS Safety Report 21053693 (Version 8)
Quarter: 2023Q4

REPORT INFORMATION
  Report Type: Spontaneous
  Country: IN (occurrence: IN)
  Receive Date: 20220707
  Receipt Date: 20231124
  Transmission Date: 20240109
  Serious: Yes (Other)
  Sender: FDA-Public Use
  Company Number: IN-PFIZER INC-202200390401

PATIENT
  Age: 55 Year
  Sex: Female

DRUGS (8)
  1. PALBOCICLIB [Suspect]
     Active Substance: PALBOCICLIB
     Indication: Breast cancer
     Dosage: 125 MG, 1X/DAY
     Route: 048
     Dates: start: 20211207
  2. LACTULOSE [Concomitant]
     Active Substance: LACTULOSE
     Dosage: 20 ML AT BED TIME
  3. ENTECAVIR AL [Concomitant]
     Dosage: 0.5 MG, 1X/DAY TILL THE END OF CHEMO
  4. FOLVITE [Concomitant]
     Active Substance: FOLIC ACID
     Dosage: UNK
  5. HEMFER-XT [Concomitant]
     Dosage: UNK
  6. LETROZOLE [Concomitant]
     Active Substance: LETROZOLE
     Dosage: 2.5 MG, 1X/DAY
  7. OSTEOPHOS [Concomitant]
     Dosage: 70 MG, WEEKLY
  8. CALCIUM CARBONATE\CHOLECALCIFEROL [Concomitant]
     Active Substance: CALCIUM CARBONATE\CHOLECALCIFEROL
     Dosage: 500 MG, 1X/DAY

REACTIONS (18)
  - Neutrophil count decreased [Unknown]
  - Blood pressure increased [Unknown]
  - White blood cell count decreased [Unknown]
  - Lymphocyte count decreased [Unknown]
  - Haemoglobin decreased [Unknown]
  - Red blood cell count decreased [Unknown]
  - Platelet count decreased [Unknown]
  - Neoplasm progression [Unknown]
  - Spondylolisthesis [Unknown]
  - Depression [Unknown]
  - Lymphocyte percentage decreased [Unknown]
  - Monocyte percentage increased [Unknown]
  - Mean cell volume increased [Unknown]
  - Eosinophil percentage increased [Unknown]
  - Haematocrit decreased [Unknown]
  - Breast calcifications [Unknown]
  - Basophil percentage increased [Unknown]
  - Body temperature decreased [Unknown]

NARRATIVE: CASE EVENT DATE: 20220114
